FAERS Safety Report 12916773 (Version 1)
Quarter: 2016Q4

REPORT INFORMATION
  Report Type: Spontaneous
  Country: US (occurrence: US)
  Receive Date: 20161107
  Receipt Date: 20161107
  Transmission Date: 20170207
  Serious: No
  Sender: FDA-Public Use
  Company Number: US-BAYER-2016-212731

PATIENT
  Sex: Female

DRUGS (10)
  1. MAGNEVIST [Suspect]
     Active Substance: GADOPENTETATE DIMEGLUMINE
     Dosage: UNK UNK, ONCE
  2. LYRICA [Suspect]
     Active Substance: PREGABALIN
     Dosage: 2 DF, QD
  3. MAGNESIUM CHLORIDE. [Concomitant]
     Active Substance: MAGNESIUM CHLORIDE
     Dosage: 535 MG, QD
     Route: 048
  4. TRAMADOL. [Concomitant]
     Active Substance: TRAMADOL
     Indication: PAIN
     Dosage: 1 DF, (EVERY SIX HOURS)
  5. IBUPROFEN. [Concomitant]
     Active Substance: IBUPROFEN
     Indication: PAIN
     Dosage: UNK
  6. MELOXICAM. [Concomitant]
     Active Substance: MELOXICAM
     Dosage: 1 DF, QD
     Route: 048
  7. DICLOFENAC [Concomitant]
     Active Substance: DICLOFENAC
     Dosage: UNK
  8. NORVASC [Suspect]
     Active Substance: AMLODIPINE BESYLATE
     Dosage: 1 DF, QD
     Route: 048
  9. LYRICA [Suspect]
     Active Substance: PREGABALIN
     Dosage: (ONE TABLET BEDTIME FOR 4 NIGHTS)
  10. LYRICA [Suspect]
     Active Substance: PREGABALIN
     Dosage: 3 DF, (THREE TIME A DAY)

REACTIONS (2)
  - Oedema [None]
  - Dyspnoea [None]
